FAERS Safety Report 24880422 (Version 1)
Quarter: 2025Q1

REPORT INFORMATION
  Report Type: Spontaneous
  Country: US (occurrence: US)
  Receive Date: 20250123
  Receipt Date: 20250123
  Transmission Date: 20250408
  Serious: No
  Sender: MERCK
  Company Number: US-009507513-2501USA004029

PATIENT
  Age: 68 Year
  Sex: Male

DRUGS (3)
  1. PRIMAXIN IV [Suspect]
     Active Substance: CILASTATIN SODIUM\IMIPENEM
     Indication: Mycobacterium fortuitum infection
  2. LEVOFLOXACIN [Concomitant]
     Active Substance: LEVOFLOXACIN
  3. AMIKACIN [Concomitant]
     Active Substance: AMIKACIN

REACTIONS (1)
  - Product use in unapproved indication [Unknown]
